FAERS Safety Report 4330345-5 (Version None)
Quarter: 2004Q1

REPORT INFORMATION
  Report Type: 
  Country: None (occurrence: None)
  Receive Date: 20040329
  Receipt Date: 20040317
  Transmission Date: 20041129
  Serious: Yes (Hospitalization)
  Sender: FDA-Public Use
  Company Number: 2004018059

PATIENT
  Sex: Male

DRUGS (4)
  1. NEURONTIN [Suspect]
     Indication: NEUROPATHIC PAIN
     Dosage: 800 MG DAILY, ORAL
     Route: 048
  2. PIRETANIDE SODIUM (PIRETANIDE SODIUM) [Suspect]
     Indication: HYPERTENSION
  3. MORPHINE SULFATE [Concomitant]
  4. DISTIGMINE BROMIDE (DISTIGMINE BROMIDE) [Concomitant]

REACTIONS (2)
  - GENERAL PHYSICAL HEALTH DETERIORATION [None]
  - HEPATITIS CHOLESTATIC [None]
